FAERS Safety Report 6541755-X (Version None)
Quarter: 2010Q1

REPORT INFORMATION
  Report Type: 
  Country: None (occurrence: None)
  Receive Date: 20100119
  Receipt Date: 20100108
  Transmission Date: 20100710
  Serious: Yes (Hospitalization)
  Sender: FDA-Public Use
  Company Number: US-WYE-H12909910

PATIENT
  Age: 64 Year
  Sex: Male
  Weight: 104.33 kg

DRUGS (10)
  1. TORISEL [Suspect]
     Indication: MULTIPLE MYELOMA
     Route: 042
     Dates: start: 20091125, end: 20100105
  2. ACICLOVIR [Concomitant]
     Route: 065
  3. ALLOPURINOL [Concomitant]
     Route: 065
  4. PENTAMIDINE ISETHIONATE [Concomitant]
     Dosage: ^MONTHLY^
     Route: 065
  5. GABAPENTIN [Concomitant]
     Route: 065
  6. OXYCONTIN [Concomitant]
     Route: 065
  7. OXYCODONE [Concomitant]
     Dosage: 5 MG, 1 TO 2 TABLETS PRN PAIN
     Route: 065
  8. METHYLPREDNISOLONE [Concomitant]
  9. VELCADE [Suspect]
     Indication: MULTIPLE MYELOMA
     Route: 042
     Dates: start: 20091125, end: 20100105
  10. ASPIRIN [Concomitant]
     Route: 065

REACTIONS (5)
  - ABDOMINAL PAIN [None]
  - COLD SWEAT [None]
  - DIARRHOEA [None]
  - NAUSEA [None]
  - VOMITING [None]
